FAERS Safety Report 4509105-8 (Version None)
Quarter: 2004Q4

REPORT INFORMATION
  Report Type: 
  Country: None (occurrence: None)
  Receive Date: 20041025
  Receipt Date: 20040123
  Transmission Date: 20050328
  Serious: Yes (Hospitalization)
  Sender: FDA-Public Use
  Company Number: NSADSS2003024687

PATIENT
  Age: 80 Year
  Sex: Female
  Weight: 52.1637 kg

DRUGS (5)
  1. REMICADE [Suspect]
     Indication: RHEUMATOID ARTHRITIS
     Dosage: 200 MG, 1 IN 1 AS NECESSARY, INTRAVENOUS DRIP
     Route: 041
     Dates: start: 20021003, end: 20021003
  2. METHOTREXATE [Concomitant]
  3. FOSAMAX (ALANDRONATE SODIUM) [Concomitant]
  4. PREDNISONE [Concomitant]
  5. CELEBREX [Concomitant]

REACTIONS (2)
  - HAEMOGLOBIN DECREASED [None]
  - HYPERTENSION [None]
